FAERS Safety Report 8505994-0 (Version None)
Quarter: 2012Q3

REPORT INFORMATION
  Report Type: 
  Country: None (occurrence: None)
  Receive Date: 20120712
  Receipt Date: 20120629
  Transmission Date: 20120928
  Serious: Yes (Other)
  Sender: FDA-Public Use
  Company Number: FR-GLAXOSMITHKLINE-B0813721A

PATIENT
  Age: 97 Year
  Sex: Female

DRUGS (3)
  1. NITROGLYCERIN [Concomitant]
     Indication: CARDIAC FAILURE ACUTE
     Route: 048
     Dates: start: 20120507
  2. ARIXTRA [Suspect]
     Indication: THROMBOSIS PROPHYLAXIS
     Dosage: 2.5MG PER DAY
     Route: 058
     Dates: start: 20120507
  3. LASIX [Concomitant]
     Indication: CARDIAC FAILURE ACUTE
     Route: 048
     Dates: start: 20120507

REACTIONS (2)
  - JAUNDICE [None]
  - SECRETION DISCHARGE [None]
